FAERS Safety Report 21104298 (Version 1)
Quarter: 2022Q3

REPORT INFORMATION
  Report Type: Other
  Country: None (occurrence: JP)
  Receive Date: 20220720
  Receipt Date: 20220720
  Transmission Date: 20221027
  Serious: Yes (Hospitalization, Other)
  Sender: FDA-Public Use
  Company Number: JP-ACI HealthCare Limited-2131048

PATIENT
  Age: 78 Year
  Sex: Male

DRUGS (5)
  1. LEVETIRACETAM [Suspect]
     Active Substance: LEVETIRACETAM
     Indication: Epilepsy
     Route: 065
  2. AMLODIPINE [Interacting]
     Active Substance: AMLODIPINE BESYLATE
     Route: 065
  3. LACOSAMIDE [Interacting]
     Active Substance: LACOSAMIDE
     Route: 065
  4. EDOXABAN [Concomitant]
     Active Substance: EDOXABAN
     Route: 065
  5. TELMISARTAN [Concomitant]
     Active Substance: TELMISARTAN
     Route: 065

REACTIONS (2)
  - Sinus node dysfunction [Recovered/Resolved]
  - Drug interaction [Recovered/Resolved]
